FAERS Safety Report 16140247 (Version 1)
Quarter: 2019Q2

REPORT INFORMATION
  Report Type: Spontaneous
  Country: FR (occurrence: FR)
  Receive Date: 20190401
  Receipt Date: 20190401
  Transmission Date: 20190711
  Serious: Yes (Death, Hospitalization)
  Sender: FDA-Public Use
  Company Number: FR-SA-2019SA087761

PATIENT
  Age: 78 Year
  Sex: Female
  Weight: 78 kg

DRUGS (3)
  1. CLOPIDOGREL BISULFATE. [Suspect]
     Active Substance: CLOPIDOGREL BISULFATE
     Indication: PROPHYLAXIS
     Dosage: 75 MG, UNK
     Route: 048
     Dates: start: 20181220
  2. FLUINDIONE [Suspect]
     Active Substance: FLUINDIONE
     Indication: PROPHYLAXIS
     Dosage: 20 MG, UNK
     Route: 048
  3. ACETYLSALICYLATE LYSINE [Suspect]
     Active Substance: ASPIRIN DL-LYSINE
     Indication: PROPHYLAXIS
     Dosage: 1 DF, UNK
     Route: 048
     Dates: start: 20181220

REACTIONS (3)
  - Melaena [Fatal]
  - Anaemia [Fatal]
  - Dyspnoea [Fatal]

NARRATIVE: CASE EVENT DATE: 20181221
